FAERS Safety Report 10221868 (Version 1)
Quarter: 2014Q2

REPORT INFORMATION
  Report Type: Spontaneous
  Country: AR (occurrence: AR)
  Receive Date: 20140606
  Receipt Date: 20140606
  Transmission Date: 20141212
  Serious: No
  Sender: FDA-Public Use
  Company Number: AR-BIOMARINAP-AR-2013-101800

PATIENT
  Sex: Male
  Weight: 28.2 kg

DRUGS (1)
  1. NAGLAZYME [Suspect]
     Indication: MUCOPOLYSACCHARIDOSIS IV
     Dosage: 25 MG, UNK
     Route: 041
     Dates: start: 20100301

REACTIONS (1)
  - Poor venous access [Recovering/Resolving]
